FAERS Safety Report 9990839 (Version 1)
Quarter: 2014Q1

REPORT INFORMATION
  Report Type: Report from Study
  Country: US (occurrence: US)
  Receive Date: 20140310
  Receipt Date: 20140310
  Transmission Date: 20141002
  Serious: No
  Sender: FDA-Public Use
  Company Number: US-ABBVIE-13P-163-1131472-00

PATIENT
  Age: 62 Year
  Sex: Male

DRUGS (2)
  1. HUMIRA [Suspect]
     Indication: ANKYLOSING SPONDYLITIS
     Dates: start: 201302
  2. CELEBREX [Concomitant]
     Indication: ARTHRITIS

REACTIONS (3)
  - Insomnia [Recovering/Resolving]
  - Oral herpes [Not Recovered/Not Resolved]
  - Anxiety [Unknown]
